FAERS Safety Report 6638089-1 (Version None)
Quarter: 2010Q1

REPORT INFORMATION
  Report Type: 
  Country: None (occurrence: None)
  Receive Date: 20100317
  Receipt Date: 20100226
  Transmission Date: 20100710
  Serious: Yes (Other)
  Sender: FDA-Public Use
  Company Number: TH-B.I. PHARMACEUTICALS,INC./RIDGEFIELD-2010-DE-01377GD

PATIENT
  Sex: Female

DRUGS (3)
  1. NEVIRAPINE [Suspect]
     Indication: HIV INFECTION
     Dosage: 200 MG
  2. ZIDOVUDINE [Suspect]
     Indication: HIV INFECTION
     Dosage: 300 MG EVERY 3 HOURS
  3. DIDANOSINE [Suspect]
     Indication: HIV INFECTION
     Dosage: 400 MG
     Route: 048

REACTIONS (1)
  - STILLBIRTH [None]
